FAERS Safety Report 17258997 (Version 1)
Quarter: 2020Q1

REPORT INFORMATION
  Report Type: Spontaneous
  Country: SE (occurrence: SE)
  Receive Date: 20200110
  Receipt Date: 20200110
  Transmission Date: 20200409
  Serious: Yes (Other)
  Sender: FDA-Public Use
  Company Number: SE-PFIZER INC-2020010462

PATIENT
  Age: 48 Year
  Sex: Female

DRUGS (2)
  1. SIMVASTATIN. [Concomitant]
     Active Substance: SIMVASTATIN
  2. SERTRALINE HCL [Suspect]
     Active Substance: SERTRALINE HYDROCHLORIDE
     Indication: DEPRESSION
     Dosage: 1 UNK, DAILY (1/2 X 1)
     Dates: start: 201306

REACTIONS (2)
  - Colitis microscopic [Unknown]
  - Diarrhoea [Unknown]

NARRATIVE: CASE EVENT DATE: 201306
